FAERS Safety Report 4940529-0 (Version None)
Quarter: 2006Q1

REPORT INFORMATION
  Report Type: 
  Country: None (occurrence: None)
  Receive Date: 20060112
  Receipt Date: 20051115
  Transmission Date: 20060701
  Serious: Yes (Life-Threatening)
  Sender: FDA-Public Use
  Company Number: 425007

PATIENT
  Age: 45 Year
  Sex: Female

DRUGS (5)
  1. FUZEON [Suspect]
     Indication: HIV TEST POSITIVE
     Dosage: 50 MG 2 PER DAY SUBCUTANEOUS
     Route: 058
  2. KALETRA [Suspect]
     Indication: HIV TEST POSITIVE
     Dosage: 2 PER DAY ORAL
     Route: 048
  3. DIOVAN [Concomitant]
  4. VIREAD [Concomitant]
  5. ZERIT [Concomitant]

REACTIONS (1)
  - PANCREATITIS [None]
